FAERS Safety Report 6082337-6 (Version None)
Quarter: 2009Q1

REPORT INFORMATION
  Report Type: 
  Country: None (occurrence: None)
  Receive Date: 20090218
  Receipt Date: 20081217
  Transmission Date: 20090719
  Serious: Yes (Death, Hospitalization)
  Sender: FDA-Public Use
  Company Number: US-ROCHE-603927

PATIENT
  Sex: Female
  Weight: 94.1 kg

DRUGS (3)
  1. CAPECITABINE [Suspect]
     Indication: BREAST CANCER METASTATIC
     Route: 065
     Dates: start: 20070514, end: 20080615
  2. BLINDED BEVACIZUMAB [Suspect]
     Dosage: DATE OF MOST RECENT DRUG DOSE IS ON 14 MAY 2008
     Route: 042
     Dates: start: 20070514, end: 20080608
  3. BLINDED PLACEBO [Suspect]
     Indication: BREAST CANCER METASTATIC
     Dosage: DATE OF MOST RECENT DRUG DOSE IS ON 14 MAY 2008.
     Route: 042
     Dates: start: 20070514, end: 20080608

REACTIONS (1)
  - INTERSTITIAL LUNG DISEASE [None]
